FAERS Safety Report 4557547-7 (Version None)
Quarter: 2005Q1

REPORT INFORMATION
  Report Type: 
  Country: None (occurrence: None)
  Receive Date: 20050120
  Receipt Date: 20050113
  Transmission Date: 20050727
  Serious: Yes (Life-Threatening, Hospitalization)
  Sender: FDA-Public Use
  Company Number: GB-MERCK-0501GBR00151

PATIENT
  Age: 77 Year
  Sex: Female
  Weight: 70 kg

DRUGS (12)
  1. DECADRON [Suspect]
     Route: 048
  2. CARBIMAZOLE [Suspect]
     Indication: HYPERTHYROIDISM
     Route: 048
     Dates: start: 20041130, end: 20041213
  3. FUROSEMIDE [Concomitant]
     Route: 048
  4. METOPROLOL [Concomitant]
     Route: 048
  5. ASPIRIN [Concomitant]
     Route: 048
  6. DEXAMETHASONE [Concomitant]
     Route: 047
  7. DIGOXIN [Concomitant]
     Route: 048
  8. LANSOPRAZOLE [Concomitant]
     Route: 065
  9. CARVEDILOL [Concomitant]
     Route: 065
  10. ISOSORBIDE MONONITRATE [Concomitant]
     Route: 065
  11. WARFARIN [Concomitant]
     Route: 065
  12. BUMETANIDE [Concomitant]
     Route: 065

REACTIONS (1)
  - NEUTROPENIA [None]
